FAERS Safety Report 10144886 (Version 1)
Quarter: 2014Q2

REPORT INFORMATION
  Report Type: Spontaneous
  Country: US (occurrence: US)
  Receive Date: 20140430
  Receipt Date: 20140430
  Transmission Date: 20141212
  Serious: No
  Sender: FDA-Public Use
  Company Number: US-SANOFI-AVENTIS-2013SA080846

PATIENT
  Age: 57 Year
  Sex: Female

DRUGS (1)
  1. DEMEROL [Suspect]
     Indication: MIGRAINE
     Dosage: TAKEN FROM: 10 YEARS AGO
     Route: 048

REACTIONS (3)
  - Burning sensation [Not Recovered/Not Resolved]
  - Paraesthesia [Not Recovered/Not Resolved]
  - Drug ineffective [Unknown]
